FAERS Safety Report 16156340 (Version 2)
Quarter: 2019Q2

REPORT INFORMATION
  Report Type: Report from Study
  Country: CO (occurrence: CO)
  Receive Date: 20190404
  Receipt Date: 20190418
  Transmission Date: 20190711
  Serious: Yes (Hospitalization, Other)
  Sender: FDA-Public Use
  Company Number: CO-SA-2019SA088627

PATIENT
  Age: 69 Year
  Sex: Female

DRUGS (3)
  1. LANTUS [Suspect]
     Active Substance: INSULIN GLARGINE
     Indication: TYPE 2 DIABETES MELLITUS
     Dosage: 30 IU, QD
     Route: 058
     Dates: start: 20170403
  2. ENALAPRIL [Concomitant]
     Active Substance: ENALAPRIL
     Dosage: UNK
  3. NO STUDY DRUG GIVEN [Suspect]
     Active Substance: UNSPECIFIED INGREDIENT
     Dosage: UNK

REACTIONS (12)
  - Cardiomegaly [Not Recovered/Not Resolved]
  - Fatigue [Unknown]
  - Cough [Recovering/Resolving]
  - Cataract [Not Recovered/Not Resolved]
  - Blood glucose increased [Unknown]
  - Syncope [Recovered/Resolved]
  - Tooth fracture [Not Recovered/Not Resolved]
  - Diarrhoea [Recovered/Resolved]
  - Tooth loss [Not Recovered/Not Resolved]
  - Pneumonia [Recovering/Resolving]
  - Chest pain [Not Recovered/Not Resolved]
  - Glycosylated haemoglobin increased [Unknown]

NARRATIVE: CASE EVENT DATE: 2018
